FAERS Safety Report 18543513 (Version 1)
Quarter: 2020Q4

REPORT INFORMATION
  Report Type: Report from Study
  Country: None (occurrence: US)
  Receive Date: 20201125
  Receipt Date: 20201125
  Transmission Date: 20210114
  Serious: Yes (Hospitalization, Other)
  Sender: FDA-Public Use
  Company Number: US-ABBVIE-20K-163-3657411-00

PATIENT
  Age: 52 Year
  Sex: Female

DRUGS (1)
  1. HUMIRA [Suspect]
     Active Substance: ADALIMUMAB
     Indication: PSORIASIS
     Dosage: CITRATE FREE
     Route: 058

REACTIONS (16)
  - Dyspnoea [Not Recovered/Not Resolved]
  - Vitamin B12 decreased [Unknown]
  - Cardiac disorder [Not Recovered/Not Resolved]
  - Cholecystitis [Recovered/Resolved]
  - Sinusitis [Recovered/Resolved]
  - Palpitations [Unknown]
  - Blood folate decreased [Unknown]
  - Asthenia [Unknown]
  - Vomiting [Unknown]
  - Diarrhoea [Unknown]
  - Blood iron decreased [Unknown]
  - Hypertension [Not Recovered/Not Resolved]
  - Gastrointestinal haemorrhage [Unknown]
  - Blood creatinine decreased [Unknown]
  - Dehydration [Recovered/Resolved]
  - Joint swelling [Not Recovered/Not Resolved]

NARRATIVE: CASE EVENT DATE: 2017
